FAERS Safety Report 6100236-8 (Version None)
Quarter: 2009Q1

REPORT INFORMATION
  Report Type: 
  Country: None (occurrence: None)
  Receive Date: 20090303
  Receipt Date: 20090225
  Transmission Date: 20090719
  Serious: Yes (Life-Threatening)
  Sender: FDA-Public Use
  Company Number: IT-JNJFOC-20090300403

PATIENT
  Sex: Male

DRUGS (3)
  1. KOLIBRI [Suspect]
     Indication: MUSCULOSKELETAL PAIN
     Route: 048
  2. CIALIS [Concomitant]
  3. NSAID'S [Concomitant]

REACTIONS (1)
  - LARYNGEAL OEDEMA [None]
